FAERS Safety Report 6476693-4 (Version None)
Quarter: 2009Q4

REPORT INFORMATION
  Report Type: 
  Country: None (occurrence: None)
  Receive Date: 20091207
  Receipt Date: 20091127
  Transmission Date: 20100525
  Serious: Yes (Hospitalization)
  Sender: FDA-Public Use
  Company Number: JP-ROCHE-662317

PATIENT
  Sex: Male
  Weight: 9 kg

DRUGS (3)
  1. TAMIFLU [Suspect]
     Indication: ANTIVIRAL PROPHYLAXIS
     Dosage: DRUG: TAMIFLU DRY SYRUP 3%
     Route: 048
     Dates: start: 20090928, end: 20090930
  2. POLARAMINE [Concomitant]
     Dosage: DRUG:POLARAMINE(D-CHLORPHENIRAMINE MALEATE), NOTE: DIVIDED INTO 3
     Route: 048
     Dates: start: 20090928, end: 20091001
  3. MUCODYNE [Concomitant]
     Dosage: NOTE: DIVIDED INTO 3
     Route: 048
     Dates: start: 20090928, end: 20091001

REACTIONS (1)
  - STAPHYLOCOCCAL SCALDED SKIN SYNDROME [None]
